FAERS Safety Report 8186472-8 (Version None)
Quarter: 2012Q1

REPORT INFORMATION
  Report Type: 
  Country: None (occurrence: None)
  Receive Date: 20120302
  Receipt Date: 20120302
  Transmission Date: 20120608
  Serious: Yes (Hospitalization)
  Sender: FDA-Public Use
  Company Number: None

PATIENT
  Age: 76 Year
  Sex: Female
  Weight: 52.6 kg

DRUGS (2)
  1. AZACITIDINE [Suspect]
     Indication: MULTIPLE MYELOMA
     Dosage: 44.4MG 2XWEEK SQ
     Route: 058
     Dates: start: 20110111, end: 20110329
  2. LENALIDOMIDE [Suspect]
     Indication: MULTIPLE MYELOMA
     Dosage: 25MG DAYS 1-21 ORAL
     Route: 048
     Dates: start: 20110111, end: 20110329

REACTIONS (8)
  - HYPOXIA [None]
  - COUGH [None]
  - ASPIRATION [None]
  - DYSPNOEA [None]
  - PULMONARY HYPERTENSION [None]
  - ATELECTASIS [None]
  - PLEURAL EFFUSION [None]
  - HYPOTENSION [None]
